APPROVED DRUG PRODUCT: ACYCLOVIR
Active Ingredient: ACYCLOVIR
Strength: 5%
Dosage Form/Route: OINTMENT;TOPICAL
Application: A205974 | Product #001 | TE Code: AB
Applicant: ZYDUS LIFESCIENCES LTD
Approved: Mar 15, 2019 | RLD: No | RS: No | Type: RX